FAERS Safety Report 19456093 (Version 2)
Quarter: 2021Q3

REPORT INFORMATION
  Report Type: Report from Study
  Country: BR (occurrence: BR)
  Receive Date: 20210624
  Receipt Date: 20210924
  Transmission Date: 20211014
  Serious: Yes (Other)
  Sender: FDA-Public Use
  Company Number: BR-UCBSA-2021029686

PATIENT
  Age: 61 Year
  Sex: Female
  Weight: 63 kg

DRUGS (10)
  1. CERTOLIZUMAB PEGOL [Suspect]
     Active Substance: CERTOLIZUMAB PEGOL
     Indication: RHEUMATOID ARTHRITIS
     Dosage: 400 MILLIGRAM, EV 30 DAYS
     Route: 058
     Dates: end: 20210408
  2. CARBOLITIUM [Concomitant]
     Active Substance: LITHIUM CARBONATE
     Indication: DEPRESSION
     Dosage: 3 DOSAGE FORM, ONCE DAILY (QD)
     Route: 048
     Dates: start: 2007
  3. ALPRAZOLAM. [Concomitant]
     Active Substance: ALPRAZOLAM
     Indication: BIPOLAR DISORDER
  4. PANTOPRAZOLE [Concomitant]
     Active Substance: PANTOPRAZOLE
     Indication: GASTRIC DISORDER
  5. ALPRAZOLAM. [Concomitant]
     Active Substance: ALPRAZOLAM
     Indication: INSOMNIA
     Dosage: 1 DOSAGE FORM, ONCE DAILY (QD)
     Route: 048
     Dates: start: 2007
  6. IVERMECTIN. [Concomitant]
     Active Substance: IVERMECTIN
     Indication: COVID-19
     Route: 048
  7. HYDROXYCHLOROQUINE [Concomitant]
     Active Substance: HYDROXYCHLOROQUINE
     Indication: COVID-19
     Dosage: 1 DOSAGE FORM, ONCE DAILY (QD)
     Route: 048
  8. CERTOLIZUMAB PEGOL [Suspect]
     Active Substance: CERTOLIZUMAB PEGOL
     Dosage: 400 MILLIGRAM, EV 30 DAYS
     Route: 058
     Dates: start: 20210508
  9. TRAMAL RETARD [Concomitant]
     Active Substance: TRAMADOL
     Indication: PAIN
     Dosage: 100 MILLIGRAM, ONCE DAILY (QD)
     Route: 048
  10. AMITRIPTILINA [AMITRIPTYLINE] [Concomitant]
     Active Substance: AMITRIPTYLINE HYDROCHLORIDE
     Indication: DEPRESSION
     Dosage: 1 DOSAGE FORM, ONCE DAILY (QD)
     Route: 048
     Dates: start: 2007

REACTIONS (7)
  - Decreased appetite [Not Recovered/Not Resolved]
  - Abdominal distension [Not Recovered/Not Resolved]
  - Thyroid disorder [Not Recovered/Not Resolved]
  - Product availability issue [Unknown]
  - Rheumatoid arthritis [Recovering/Resolving]
  - Therapy interrupted [Unknown]
  - COVID-19 [Recovered/Resolved]

NARRATIVE: CASE EVENT DATE: 2020
